FAERS Safety Report 10203345 (Version 1)
Quarter: 2014Q2

REPORT INFORMATION
  Report Type: Report from Study
  Country: CA (occurrence: CA)
  Receive Date: 20140529
  Receipt Date: 20140529
  Transmission Date: 20141212
  Serious: Yes (Death, Hospitalization)
  Sender: FDA-Public Use
  Company Number: PHHY2014CA065450

PATIENT
  Age: 76 Year
  Sex: Male

DRUGS (1)
  1. SANDOSTATIN [Suspect]
     Indication: ANAEMIA
     Dosage: 100 UG, TID
     Route: 058
     Dates: start: 20140516

REACTIONS (1)
  - Death [Fatal]
